FAERS Safety Report 19087241 (Version 1)
Quarter: 2021Q2

REPORT INFORMATION
  Report Type: Report from Study
  Country: US (occurrence: US)
  Receive Date: 20210402
  Receipt Date: 20210402
  Transmission Date: 20210717
  Serious: Yes (Other)
  Sender: FDA-Public Use
  Company Number: US-HBP-2021US021650

PATIENT
  Sex: Female

DRUGS (1)
  1. VALCHLOR [Suspect]
     Active Substance: MECHLORETHAMINE
     Indication: CUTANEOUS T-CELL LYMPHOMA
     Dosage: THIN FILM, EVERY THIRD DAY
     Route: 061
     Dates: start: 202012, end: 20210309

REACTIONS (11)
  - Application site dryness [Not Recovered/Not Resolved]
  - Drug ineffective [Unknown]
  - Application site inflammation [Recovered/Resolved]
  - Malaise [Not Recovered/Not Resolved]
  - Application site scab [Recovered/Resolved]
  - Off label use [Not Recovered/Not Resolved]
  - Product use issue [Unknown]
  - Application site pain [Recovered/Resolved]
  - Application site haemorrhage [Recovered/Resolved]
  - Application site erythema [Recovered/Resolved]
  - Application site pruritus [Recovered/Resolved]
